FAERS Safety Report 5356370-3 (Version None)
Quarter: 2007Q2

REPORT INFORMATION
  Report Type: 
  Country: None (occurrence: None)
  Receive Date: 20070530
  Receipt Date: 20061213
  Transmission Date: 20071010
  Serious: Yes (Hospitalization)
  Sender: FDA-Public Use
  Company Number: US200609004834

PATIENT
  Age: 42 Year
  Sex: Male
  Weight: 63.5 kg

DRUGS (3)
  1. ZYPREXA [Suspect]
     Indication: DEPRESSION
     Dosage: 5 MG
     Dates: start: 19980101, end: 20020101
  2. QUETIAPINE(OLANZAPINE UNKNOWN FORMULATION) UNKNOWN [Concomitant]
  3. FLUOXETINE [Concomitant]

REACTIONS (6)
  - BLOOD CHOLESTEROL ABNORMAL [None]
  - CEREBROVASCULAR ACCIDENT [None]
  - CEREBROVASCULAR DISORDER [None]
  - DIABETES MELLITUS [None]
  - METABOLIC DISORDER [None]
  - MUMPS [None]
